FAERS Safety Report 5057903-7 (Version None)
Quarter: 2006Q3

REPORT INFORMATION
  Report Type: 
  Country: None (occurrence: None)
  Receive Date: 20060721
  Receipt Date: 20060329
  Transmission Date: 20061208
  Serious: No
  Sender: FDA-Public Use
  Company Number: US-GLAXOSMITHKLINE-A0599544A

PATIENT
  Age: 56 Year
  Sex: Female

DRUGS (6)
  1. AVANDIA [Suspect]
     Route: 048
     Dates: start: 20040101
  2. INSULIN [Suspect]
     Route: 065
  3. GLUCOPHAGE [Concomitant]
  4. PAIN MEDICATION [Concomitant]
  5. MEDICATION FOR HIGH BLOOD PRESSURE [Concomitant]
  6. RANITIDINE [Concomitant]

REACTIONS (6)
  - BLOOD GLUCOSE DECREASED [None]
  - BLOOD GLUCOSE INCREASED [None]
  - BLOOD PRESSURE INCREASED [None]
  - DEHYDRATION [None]
  - INFLUENZA [None]
  - MALAISE [None]
